FAERS Safety Report 12595643 (Version 2)
Quarter: 2016Q3

REPORT INFORMATION
  Report Type: Spontaneous
  Country: BR (occurrence: BR)
  Receive Date: 20160727
  Receipt Date: 20160810
  Transmission Date: 20161109
  Serious: Yes (Other)
  Sender: FDA-Public Use
  Company Number: BR-BEH-2016061740

PATIENT
  Age: 34 Year
  Sex: Female

DRUGS (4)
  1. HUMAN IMMUNOGLOBULIN 5G [Suspect]
     Active Substance: HUMAN IMMUNOGLOBULIN G
     Indication: FOETAL DEATH
     Dosage: 4TH GESTATION WEEK, IND.:TO AVOID MISCARRIAGE, BATCH NO./EXP.DATE/DOSE/ROUTE/START/STOP DATE:N/I
     Route: 065
  2. HUMAN IMMUNOGLOBULIN 5G [Suspect]
     Active Substance: HUMAN IMMUNOGLOBULIN G
     Indication: HAEMORRHAGE FOETAL
     Dosage: SINCE 20TH GEST.WK, IND.:PLATELET INCOMP.-TO AVOID BLEED.OF FETUS,DOSE:18 BOTTLES (90G)/WEEK, ONG.
     Route: 065
  3. HUMAN IMMUNOGLOBULIN 5G [Suspect]
     Active Substance: HUMAN IMMUNOGLOBULIN G
     Dosage: WEEK OF 20-APR-2016: 10 VIALS OF 5 G DUE TO LACK OF MEDICINE IN PUBLIC HOSPITAL
     Route: 065
  4. HUMAN IMMUNOGLOBULIN 5G [Suspect]
     Active Substance: HUMAN IMMUNOGLOBULIN G
     Indication: PLATELET DISORDER
     Dosage: 12TH GESTATION WEEK, IND.:TO AVOID MISCARRIAGE, BATCH NO./EXP.DATE/DOSE/ROUTE/START/STOP DATE:N/I
     Route: 065

REACTIONS (2)
  - Pre-eclampsia [Unknown]
  - Premature delivery [Recovered/Resolved]

NARRATIVE: CASE EVENT DATE: 20160716
